FAERS Safety Report 6331417-6 (Version None)
Quarter: 2009Q3

REPORT INFORMATION
  Report Type: 
  Country: None (occurrence: None)
  Receive Date: 20090827
  Receipt Date: 20090821
  Transmission Date: 20100115
  Serious: Yes (Death)
  Sender: FDA-Public Use
  Company Number: DE-ROCHE-652607

PATIENT
  Age: 67 Year
  Sex: Female

DRUGS (1)
  1. CAPECITABINE [Suspect]
     Dosage: FREQUENCY REPORTED AS DAY 1 TO DAY 14. DATE OF LAST DOSE PRIOR TO SAE: 06 JUNE 2007
     Route: 065
     Dates: start: 20060324

REACTIONS (1)
  - DEATH [None]
